FAERS Safety Report 9122815 (Version 1)
Quarter: 2013Q1

REPORT INFORMATION
  Report Type: Spontaneous
  Country: US (occurrence: US)
  Receive Date: 20130115
  Receipt Date: 20130115
  Transmission Date: 20140127
  Serious: Yes (Other)
  Sender: FDA-Public Use
  Company Number: US-009507513-1301USA002103

PATIENT
  Age: 12 Year
  Sex: Male

DRUGS (8)
  1. SINGULAIR [Suspect]
     Indication: PRODUCT USED FOR UNKNOWN INDICATION
  2. NASONEX [Concomitant]
  3. ALBUTEROL [Concomitant]
  4. SERETIDE [Concomitant]
  5. CETIRIZINE HYDROCHLORIDE [Concomitant]
  6. AMINOPHYLLINE [Concomitant]
  7. XOLAIR [Suspect]
     Dosage: 225 MG, UNK
  8. XOLAIR [Suspect]
     Dosage: UNK, 1/MONTH

REACTIONS (2)
  - Malaise [Unknown]
  - Diarrhoea [Unknown]
